FAERS Safety Report 4937096-4 (Version None)
Quarter: 2006Q1

REPORT INFORMATION
  Report Type: 
  Country: None (occurrence: None)
  Receive Date: 20060302
  Receipt Date: 20060210
  Transmission Date: 20060701
  Serious: Yes (Hospitalization)
  Sender: FDA-Public Use
  Company Number: 6020502

PATIENT
  Age: 72 Year
  Sex: Female

DRUGS (1)
  1. LEVOTHYROXINE SODIUM [Suspect]
     Indication: THYROIDECTOMY
     Dosage: 100 MG, 1 D ORAL
     Route: 048
     Dates: start: 19940101

REACTIONS (5)
  - ANGIONEUROTIC OEDEMA [None]
  - MOUTH ULCERATION [None]
  - RASH [None]
  - SWELLING FACE [None]
  - VOMITING [None]
